FAERS Safety Report 9301616 (Version 1)
Quarter: 2012Q4

REPORT INFORMATION
  Report Type: Spontaneous
  Country: CA (occurrence: None)
  Receive Date: 20121109
  Receipt Date: 20121109
  Transmission Date: 20130627
  Serious: Yes (Death)
  Sender: FDA-Public Use
  Company Number: 2011S1000689

PATIENT
  Sex: Male

DRUGS (1)
  1. CUBICIN (DAPTOMYCIN) [Suspect]
     Indication: BACTEREMIA

REACTIONS (2)
  - Incorrect dose administered [None]
  - Continuous haemodiafiltration [None]
